FAERS Safety Report 18749383 (Version 2)
Quarter: 2021Q1

REPORT INFORMATION
  Report Type: Report from Study
  Country: CO (occurrence: CO)
  Receive Date: 20210116
  Receipt Date: 20210223
  Transmission Date: 20210419
  Serious: Yes (Death)
  Sender: FDA-Public Use
  Company Number: NVSC2021CO009220

PATIENT
  Age: 61 Year
  Sex: Male

DRUGS (2)
  1. VOTRIENT [Suspect]
     Active Substance: PAZOPANIB HYDROCHLORIDE
     Indication: SOFT TISSUE SARCOMA
     Dosage: 800 MG, QD
     Route: 048
     Dates: start: 202009, end: 202011
  2. VOTRIENT [Suspect]
     Active Substance: PAZOPANIB HYDROCHLORIDE
     Dosage: 400 UNK
     Route: 048
     Dates: start: 202011, end: 20210107

REACTIONS (2)
  - Cardiac arrest [Fatal]
  - Pain [Unknown]

NARRATIVE: CASE EVENT DATE: 20210109
